FAERS Safety Report 16954254 (Version 1)
Quarter: 2019Q4

REPORT INFORMATION
  Report Type: Spontaneous
  Country: US (occurrence: US)
  Receive Date: 20191023
  Receipt Date: 20191023
  Transmission Date: 20200122
  Serious: No
  Sender: FDA-Public Use
  Company Number: US-ABBVIE-19S-163-2632910-00

PATIENT
  Sex: Female

DRUGS (1)
  1. LUPRON DEPOT [Suspect]
     Active Substance: LEUPROLIDE ACETATE
     Indication: ANGIOMYXOMA
     Route: 030

REACTIONS (3)
  - Off label use [Not Recovered/Not Resolved]
  - Fatigue [Unknown]
  - Bone pain [Unknown]
